FAERS Safety Report 17645362 (Version 3)
Quarter: 2020Q2

REPORT INFORMATION
  Report Type: Spontaneous
  Country: US (occurrence: US)
  Receive Date: 20200408
  Receipt Date: 20200428
  Transmission Date: 20200713
  Serious: Yes (Hospitalization, Other)
  Sender: FDA-Public Use
  Company Number: US-AMGEN-USASP2020055688

PATIENT
  Age: 62 Year
  Sex: Female

DRUGS (4)
  1. ADENOSINE. [Suspect]
     Active Substance: ADENOSINE
     Indication: SINUS TACHYCARDIA
     Dosage: UNK
     Route: 065
     Dates: start: 2019
  2. CORLANOR [Suspect]
     Active Substance: IVABRADINE HYDROCHLORIDE
     Indication: SUPRAVENTRICULAR TACHYCARDIA
     Dosage: 5 MILLIGRAM, BID
     Route: 065
     Dates: start: 2019
  3. CORLANOR [Suspect]
     Active Substance: IVABRADINE HYDROCHLORIDE
     Indication: VENTRICULAR TACHYCARDIA
     Dosage: 5 MILLIGRAM, BID
     Route: 065
  4. CORLANOR [Suspect]
     Active Substance: IVABRADINE HYDROCHLORIDE
     Indication: ARRHYTHMIA
     Dosage: INCREASED DOSE
     Route: 065

REACTIONS (5)
  - Dyspnoea [Unknown]
  - Tachycardia [Unknown]
  - Troponin I increased [Unknown]
  - Impaired work ability [Unknown]
  - Off label use [Unknown]

NARRATIVE: CASE EVENT DATE: 2019
